FAERS Safety Report 8566622 (Version 3)
Quarter: 2012Q4

REPORT INFORMATION
  Report Type: 
  Country: FR (occurrence: FR)
  Receive Date: 20120517
  Receipt Date: 20121017
  Transmission Date: 20130627
  Serious: Yes (Other)
  Sender: FDA-Public Use
  Company Number: FR-JNJFOC-20120511014

PATIENT
  Sex: Female
  Weight: 64 kg

DRUGS (8)
  1. IXPRIM [Suspect]
     Indication: PAIN
     Route: 048
     Dates: start: 2011, end: 201112
  2. MAG 2 [Concomitant]
     Indication: ASTHENIA
     Route: 065
     Dates: start: 2007
  3. EUPHYTOSE [Concomitant]
     Indication: SLEEP DISORDER
     Route: 048
     Dates: start: 2011
  4. COSOPT [Concomitant]
     Indication: GLAUCOMA
     Route: 047
  5. SPASFON LYOC [Concomitant]
     Route: 048
  6. DEDROGYL [Concomitant]
     Route: 048
  7. AZOPT [Concomitant]
     Indication: GLAUCOMA
     Route: 047
  8. TRAVATAN [Concomitant]
     Route: 047

REACTIONS (4)
  - Myocardial infarction [Recovering/Resolving]
  - Bundle branch block left [Recovered/Resolved]
  - Electrocardiogram QRS complex abnormal [Not Recovered/Not Resolved]
  - Melaena [Recovered/Resolved with Sequelae]
